FAERS Safety Report 10936587 (Version 2)
Quarter: 2015Q1

REPORT INFORMATION
  Report Type: Spontaneous
  Country: US (occurrence: None)
  Receive Date: 20150212
  Receipt Date: 20150212
  Transmission Date: 20150721
  Serious: No
  Sender: FDA-Public Use
  Company Number: TPA2011A00149

PATIENT
  Age: 67 Year
  Sex: Female

DRUGS (4)
  1. LOCAL STEROID (CORTICOSTEROIDS) [Concomitant]
  2. ULORIC [Suspect]
     Active Substance: FEBUXOSTAT
     Indication: HYPERURICAEMIA
     Route: 048
     Dates: start: 20101229, end: 20110107
  3. ULORIC [Suspect]
     Active Substance: FEBUXOSTAT
     Indication: GOUTY ARTHRITIS
     Route: 048
     Dates: start: 20101229, end: 20110107
  4. PREDNISONE (PREDNISONE) [Concomitant]
     Active Substance: PREDNISONE

REACTIONS (3)
  - Pruritus [None]
  - Dermatitis bullous [None]
  - Skin reaction [None]

NARRATIVE: CASE EVENT DATE: 20110105
